FAERS Safety Report 12762147 (Version 2)
Quarter: 2017Q4

REPORT INFORMATION
  Report Type: Spontaneous
  Country: GB (occurrence: GB)
  Receive Date: 20160920
  Receipt Date: 20171220
  Transmission Date: 20180320
  Serious: Yes (Hospitalization)
  Sender: FDA-Public Use
  Company Number: GB-009507513-1609GBR008484

PATIENT
  Age: 71 Year
  Sex: Female
  Weight: 57 kg

DRUGS (18)
  1. TINZAPARIN SODIUM [Concomitant]
     Active Substance: TINZAPARIN SODIUM
     Dosage: 14 (1 IN 1 D)
     Route: 058
     Dates: start: 20160519, end: 20160519
  2. CLOPIDOGREL [Concomitant]
     Active Substance: CLOPIDOGREL BISULFATE
     Indication: PROPHYLAXIS
     Dosage: 75 MG, 1 IN 1D
     Route: 048
     Dates: start: 2014
  3. DOXYCYCLINE. [Concomitant]
     Active Substance: DOXYCYCLINE
     Indication: RESPIRATORY DISORDER
     Dosage: 100 MG,1 IN 1 D
     Route: 048
     Dates: start: 20160329
  4. DEXAMETHASONE. [Suspect]
     Active Substance: DEXAMETHASONE
     Indication: PLASMA CELL MYELOMA
     Dosage: UNK (12 MG)
     Route: 048
     Dates: start: 20160416, end: 20160601
  5. DEXAMETHASONE. [Suspect]
     Active Substance: DEXAMETHASONE
     Dosage: 2.8571 MG, 1 IN 1 WK
     Route: 048
     Dates: start: 20160630
  6. VELCADE [Suspect]
     Active Substance: BORTEZOMIB
     Dosage: ON DAYS 1, 4, 8 AND 11 (1.3 MG/M2)
     Route: 058
     Dates: start: 20160229, end: 20160320
  7. DEXAMETHASONE. [Suspect]
     Active Substance: DEXAMETHASONE
     Dosage: 20 MG
     Route: 048
     Dates: start: 20160418, end: 20160509
  8. ALLOPURINOL. [Concomitant]
     Active Substance: ALLOPURINOL
     Indication: TUMOUR LYSIS SYNDROME
     Dosage: 300 MG, 1 IN 1 D
     Route: 048
     Dates: start: 20160229
  9. LANSOPRAZOLE. [Concomitant]
     Active Substance: LANSOPRAZOLE
     Indication: DYSPEPSIA
     Dosage: 30 MG,1 IN 1 D
     Route: 048
     Dates: start: 20160307
  10. PAMIDRONIC ACID [Concomitant]
     Active Substance: PAMIDRONIC ACID
     Indication: PROPHYLAXIS
     Dosage: 3 MG,1 IN 1 M
     Route: 042
     Dates: start: 20131210
  11. VELCADE [Suspect]
     Active Substance: BORTEZOMIB
     Indication: PLASMA CELL MYELOMA
     Dosage: ON DAYS 1, 4, 8 AND 11 (1.3 MG/M2)
     Route: 058
     Dates: start: 20160418, end: 20160509
  12. CLOPIDOGREL [Concomitant]
     Active Substance: CLOPIDOGREL BISULFATE
     Dosage: 75 MG, 1 IN 1D
     Route: 048
     Dates: end: 20160502
  13. AMOXICILLIN (+) CLAVULANATE POTASSIUM [Concomitant]
     Active Substance: AMOXICILLIN\CLAVULANATE POTASSIUM
     Indication: RESPIRATORY DISORDER
     Dosage: 1875 MG, 3 IN 1 D
     Route: 048
     Dates: start: 20160425
  14. VELCADE [Suspect]
     Active Substance: BORTEZOMIB
     Dosage: ON DAYS 1, 4, 8 AND 11 (1.3 MG/M2)
     Route: 058
     Dates: start: 20160516, end: 20160526
  15. DEXAMETHASONE. [Suspect]
     Active Substance: DEXAMETHASONE
     Dosage: 20 MG
     Route: 048
     Dates: start: 20160229, end: 20160320
  16. ACYCLOVIR. [Concomitant]
     Active Substance: ACYCLOVIR
     Indication: ANTIVIRAL PROPHYLAXIS
     Dosage: 800 MG, BID
     Route: 048
     Dates: start: 20160229
  17. ALLOPURINOL. [Concomitant]
     Active Substance: ALLOPURINOL
     Indication: PROPHYLAXIS
  18. TINZAPARIN SODIUM [Concomitant]
     Active Substance: TINZAPARIN SODIUM
     Indication: DEEP VEIN THROMBOSIS
     Dosage: 1 IN 1 D
     Route: 048
     Dates: start: 20160407, end: 20160407

REACTIONS (27)
  - Diarrhoea [Not Recovered/Not Resolved]
  - Blood glucose increased [Recovered/Resolved]
  - Tearfulness [Recovered/Resolved]
  - Synovial cyst [Unknown]
  - Nausea [Recovered/Resolved]
  - Blood phosphorus decreased [Recovered/Resolved]
  - Urinary tract infection [Unknown]
  - Erythema [Unknown]
  - Muscle spasms [Recovered/Resolved]
  - Fatigue [Unknown]
  - Dyspepsia [Recovered/Resolved]
  - Headache [Recovered/Resolved]
  - Hypotension [Unknown]
  - Blood potassium decreased [Unknown]
  - Cough [Unknown]
  - Depressed mood [Recovered/Resolved]
  - Respiratory tract infection viral [Recovered/Resolved]
  - Pyrexia [Recovered/Resolved]
  - Vision blurred [Recovered/Resolved]
  - Myalgia [Unknown]
  - Alopecia [Unknown]
  - Confusional state [Unknown]
  - Respiratory disorder [Recovered/Resolved]
  - Constipation [Recovered/Resolved]
  - Dizziness [Unknown]
  - Injection site erythema [Recovered/Resolved]
  - Thirst [Unknown]

NARRATIVE: CASE EVENT DATE: 20160302
